FAERS Safety Report 6223043-4 (Version None)
Quarter: 2009Q2

REPORT INFORMATION
  Report Type: 
  Country: None (occurrence: None)
  Receive Date: 20090609
  Receipt Date: 20090528
  Transmission Date: 20091009
  Serious: Yes (Hospitalization, Other)
  Sender: FDA-Public Use
  Company Number: 2009AP002105

PATIENT
  Sex: Male

DRUGS (1)
  1. PAROXETINE HCL [Suspect]
     Dosage: 10 MG; QD TRPL
     Route: 064

REACTIONS (6)
  - CHILLS [None]
  - DRUG WITHDRAWAL SYNDROME NEONATAL [None]
  - HYPERREFLEXIA [None]
  - HYPERTONIA NEONATAL [None]
  - MATERNAL DRUGS AFFECTING FOETUS [None]
  - NEONATAL TACHYPNOEA [None]
